FAERS Safety Report 7422965-6 (Version None)
Quarter: 2011Q2

REPORT INFORMATION
  Report Type: 
  Country: None (occurrence: None)
  Receive Date: 20110419
  Receipt Date: 20110412
  Transmission Date: 20111010
  Serious: Yes (Hospitalization)
  Sender: FDA-Public Use
  Company Number: CZ-BRISTOL-MYERS SQUIBB COMPANY-15670672

PATIENT
  Age: 15 Year
  Sex: Female
  Weight: 57 kg

DRUGS (10)
  1. POTASSIUM CHLORIDE [Concomitant]
     Indication: HYPOKALAEMIA
     Route: 048
     Dates: start: 20080901
  2. VEPESID [Suspect]
     Dates: start: 20091106, end: 20091108
  3. VORICONAZOLE [Concomitant]
     Indication: ASPERGILLOSIS
     Dosage: ON 26OCT09-26OCT09: 350MG AGIAN ON 27OCT09-30OCT09:230MG.2 PER DAY. POWDER FOR SOL FOR INFUSIO.
     Route: 042
     Dates: start: 20091026, end: 20091030
  4. MABTHERA [Suspect]
     Dates: start: 20091104, end: 20091106
  5. IFOSFAMIDE [Suspect]
     Dates: start: 20091106, end: 20091108
  6. VITACALCIN [Concomitant]
     Indication: OSTEOPOROSIS PROPHYLAXIS
     Route: 048
     Dates: start: 20080901
  7. CODEINE [Concomitant]
     Indication: COUGH
     Route: 048
     Dates: start: 20091026
  8. COLECALCIFEROL [Concomitant]
     Dosage: 2 DROPS
     Route: 048
     Dates: start: 20080901
  9. AMPHOTERICIN B [Concomitant]
     Indication: MUCOSAL INFLAMMATION
     Route: 048
     Dates: start: 20091118
  10. CARBOPLATIN [Suspect]
     Dates: start: 20091106, end: 20091107

REACTIONS (1)
  - EPISTAXIS [None]
